FAERS Safety Report 21970531 (Version 1)
Quarter: 2023Q1

REPORT INFORMATION
  Report Type: Report from Study
  Country: CO (occurrence: CO)
  Receive Date: 20230209
  Receipt Date: 20230209
  Transmission Date: 20230418
  Serious: Yes (Hospitalization)
  Sender: FDA-Public Use
  Company Number: CO-ABBVIE-4300050

PATIENT
  Age: 33 Year
  Sex: Female
  Weight: 72 kg

DRUGS (9)
  1. RINVOQ [Suspect]
     Active Substance: UPADACITINIB
     Indication: Rheumatoid arthritis
     Dosage: 15 MILLIGRAM
     Route: 048
     Dates: start: 20221124
  2. CITALOPRAM [Concomitant]
     Active Substance: CITALOPRAM HYDROBROMIDE
     Indication: Anxiety
     Route: 048
     Dates: start: 202208
  3. Vitamin D13 [Concomitant]
     Indication: Fatigue
     Dosage: NOT REPORTED
     Dates: start: 202209
  4. Ericox? [Concomitant]
     Indication: Rheumatoid arthritis
     Route: 048
     Dates: start: 202211, end: 20230127
  5. QUETIAPINE [Concomitant]
     Active Substance: QUETIAPINE
     Indication: Insomnia
     Dosage: 1 TABLET
     Route: 048
     Dates: start: 202208
  6. DICLOFENAC [Concomitant]
     Active Substance: DICLOFENAC
     Indication: Adverse event
     Route: 042
     Dates: start: 202301
  7. METHYLPREDNISOLONE [Concomitant]
     Active Substance: METHYLPREDNISOLONE
     Indication: Rheumatoid arthritis
     Route: 048
     Dates: start: 202210
  8. HYDROMORPHONE [Concomitant]
     Active Substance: HYDROMORPHONE
     Indication: Adverse event
     Dosage: NOT REPORTED
     Dates: start: 202301
  9. ACETAMINOPHEN [Concomitant]
     Active Substance: ACETAMINOPHEN
     Indication: Adverse event
     Route: 048
     Dates: start: 202301

REACTIONS (5)
  - Rheumatoid arthritis [Not Recovered/Not Resolved]
  - Pyrexia [Not Recovered/Not Resolved]
  - Inflammation [Not Recovered/Not Resolved]
  - Arthralgia [Not Recovered/Not Resolved]
  - Pain [Not Recovered/Not Resolved]

NARRATIVE: CASE EVENT DATE: 20230126
